FAERS Safety Report 5044701-3 (Version None)
Quarter: 2006Q3

REPORT INFORMATION
  Report Type: 
  Country: None (occurrence: None)
  Receive Date: 20060706
  Receipt Date: 20050929
  Transmission Date: 20061208
  Serious: No
  Sender: FDA-Public Use
  Company Number: US-AMGEN-US152381

PATIENT
  Sex: Male

DRUGS (2)
  1. KINERET [Suspect]
     Indication: RHEUMATOID ARTHRITIS
     Route: 065
     Dates: start: 20050825
  2. MEDICINALPRODUCT NOT SPECIFIED BY SENDER [Concomitant]
     Route: 065

REACTIONS (1)
  - STAPHYLOCOCCAL INFECTION [None]
